FAERS Safety Report 4628709-5 (Version None)
Quarter: 2005Q2

REPORT INFORMATION
  Report Type: 
  Country: None (occurrence: None)
  Receive Date: 20050406
  Receipt Date: 20050328
  Transmission Date: 20051028
  Serious: Yes (Hospitalization)
  Sender: FDA-Public Use
  Company Number: TPA2005A00226

PATIENT
  Age: 61 Year
  Sex: Female
  Weight: 103.4 kg

DRUGS (5)
  1. PIOGLITAZONE HCL [Suspect]
     Indication: GLUCOSE TOLERANCE IMPAIRED
     Dosage: 1 IN 1 D, PER ORAL
     Route: 048
     Dates: start: 20040818
  2. ASPIRIN [Concomitant]
  3. PEPCID [Concomitant]
  4. UNKNOWN ARTHRITIS MEDICATION [Concomitant]
  5. UNKNOWN DEPRESSION MEDICATION [Concomitant]

REACTIONS (13)
  - ANGINA PECTORIS [None]
  - BLOOD CHLORIDE DECREASED [None]
  - BLOOD UREA DECREASED [None]
  - CHEST PAIN [None]
  - HAEMATURIA [None]
  - HYPERCHOLESTEROLAEMIA [None]
  - INFLAMMATION [None]
  - LOW DENSITY LIPOPROTEIN INCREASED [None]
  - MYOCARDIAL ISCHAEMIA [None]
  - OEDEMA PERIPHERAL [None]
  - PARAESTHESIA [None]
  - PCO2 DECREASED [None]
  - STOMACH DISCOMFORT [None]
